FAERS Safety Report 8584971-8 (Version None)
Quarter: 2012Q3

REPORT INFORMATION
  Report Type: 
  Country: None (occurrence: None)
  Receive Date: 20120810
  Receipt Date: 20120731
  Transmission Date: 20120928
  Serious: Yes (Hospitalization, Other)
  Sender: FDA-Public Use
  Company Number: US-JNJFOC-20120801004

PATIENT
  Sex: Male
  Weight: 63.5 kg

DRUGS (2)
  1. INVEGA SUSTENNA [Suspect]
     Indication: PRODUCT USED FOR UNKNOWN INDICATION
     Route: 030
     Dates: start: 20120201, end: 20120301
  2. CAFFEINE CITRATE [Interacting]
     Indication: PRODUCT USED FOR UNKNOWN INDICATION
     Route: 048

REACTIONS (4)
  - ATTENTION DEFICIT/HYPERACTIVITY DISORDER [None]
  - HOSPITALISATION [None]
  - NERVOUS SYSTEM DISORDER [None]
  - DRUG INTERACTION [None]
